FAERS Safety Report 10097936 (Version 2)
Quarter: 2014Q2

REPORT INFORMATION
  Report Type: Spontaneous
  Country: GB (occurrence: GB)
  Receive Date: 20140423
  Receipt Date: 20140427
  Transmission Date: 20141212
  Serious: Yes (Hospitalization)
  Sender: FDA-Public Use
  Company Number: GB-PFIZER INC-2014111602

PATIENT
  Age: 62 Year
  Sex: Male

DRUGS (8)
  1. AMIODARONE HCL [Suspect]
     Indication: ATRIAL FIBRILLATION
     Dosage: 200 MG, DAILY
     Route: 048
     Dates: start: 201103, end: 201402
  2. AMIODARONE HCL [Suspect]
     Dosage: 100 MG, DAILY
     Route: 048
     Dates: start: 201402, end: 20140402
  3. ATENOLOL [Concomitant]
  4. ATORVASTATIN [Concomitant]
  5. LANSOPRAZOLE [Concomitant]
  6. LERCANIDIPINE [Concomitant]
  7. METFORMIN [Concomitant]
  8. XARELTO [Concomitant]

REACTIONS (5)
  - Dyspnoea [Unknown]
  - Oedema peripheral [Unknown]
  - Tachycardia [Unknown]
  - Hyperthyroidism [Unknown]
  - Thyroiditis [Recovering/Resolving]
